FAERS Safety Report 8623071-5 (Version None)
Quarter: 2012Q3

REPORT INFORMATION
  Report Type: 
  Country: None (occurrence: None)
  Receive Date: 20120827
  Receipt Date: 20120817
  Transmission Date: 20120928
  Serious: Yes (Hospitalization)
  Sender: FDA-Public Use
  Company Number: US-JNJFOC-20120810182

PATIENT
  Sex: Female
  Weight: 44.7 kg

DRUGS (1)
  1. REMICADE [Suspect]
     Indication: ANAL FISTULA
     Route: 042
     Dates: start: 20110812, end: 20120101

REACTIONS (2)
  - ANAL ABSCESS [None]
  - ANAL FISTULA [None]
